FAERS Safety Report 20979173 (Version 1)
Quarter: 2022Q2

REPORT INFORMATION
  Report Type: Spontaneous
  Country: US (occurrence: US)
  Receive Date: 20220620
  Receipt Date: 20220620
  Transmission Date: 20220720
  Serious: No
  Sender: FDA-Public Use
  Company Number: US-Accord-258196

PATIENT
  Sex: Female
  Weight: 44.45 kg

DRUGS (2)
  1. OLMESARTAN MEDOXOMIL [Suspect]
     Active Substance: OLMESARTAN MEDOXOMIL
     Indication: Blood pressure measurement
     Dosage: DOSE: 20MG ONCE A DAY AT NIGHT
  2. POTASSIUM [Concomitant]
     Active Substance: POTASSIUM

REACTIONS (1)
  - Drug ineffective [Unknown]
